FAERS Safety Report 8380141-7 (Version None)
Quarter: 2012Q2

REPORT INFORMATION
  Report Type: 
  Country: None (occurrence: None)
  Receive Date: 20120523
  Receipt Date: 20110627
  Transmission Date: 20120825
  Serious: No
  Sender: FDA-Public Use
  Company Number: US-PFIZER INC-PRP-00040

PATIENT
  Sex: Female
  Weight: 115 kg

DRUGS (5)
  1. ENALAPRIL [Concomitant]
     Indication: BLOOD PRESSURE INCREASED
     Dosage: UNK
  2. INDERAL LA [Suspect]
     Indication: TREMOR
     Dosage: 160 MG, 1X/DAY
     Route: 048
     Dates: end: 20110624
  3. SIMVASTATIN [Concomitant]
     Indication: BLOOD CHOLESTEROL INCREASED
     Dosage: UNK
  4. LEVOTHYROXINE SODIUM [Concomitant]
     Indication: HYPOTHYROIDISM
     Dosage: UNK
  5. INDERAL LA [Suspect]
     Indication: BLOOD PRESSURE INCREASED

REACTIONS (4)
  - PAROSMIA [None]
  - INSOMNIA [None]
  - DYSGEUSIA [None]
  - HEADACHE [None]
